FAERS Safety Report 19509547 (Version 1)
Quarter: 2021Q3

REPORT INFORMATION
  Report Type: Spontaneous
  Country: US (occurrence: US)
  Receive Date: 20210708
  Receipt Date: 20210708
  Transmission Date: 20211014
  Serious: No
  Sender: FDA-Public Use
  Company Number: US-ASTRAZENECA-2021A515352

PATIENT
  Age: 81 Year
  Sex: Female

DRUGS (3)
  1. BLOOD THINNER [Concomitant]
     Active Substance: UNSPECIFIED INGREDIENT
     Indication: ANTICOAGULANT THERAPY
  2. ACALABRUTINIB. [Suspect]
     Active Substance: ACALABRUTINIB
     Route: 048
  3. XARELTO [Suspect]
     Active Substance: RIVAROXABAN
     Indication: DEEP VEIN THROMBOSIS
     Route: 048

REACTIONS (3)
  - Ecchymosis [Recovering/Resolving]
  - Mouth ulceration [Recovering/Resolving]
  - Haemorrhage [Recovering/Resolving]
